FAERS Safety Report 4700973-3 (Version None)
Quarter: 2005Q2

REPORT INFORMATION
  Report Type: 
  Country: None (occurrence: None)
  Receive Date: 20050628
  Receipt Date: 20050617
  Transmission Date: 20051028
  Serious: Yes (Hospitalization, Other)
  Sender: FDA-Public Use
  Company Number: US-JNJFOC-20050604597

PATIENT
  Age: 72 Year
  Sex: Female

DRUGS (5)
  1. KETOCONAZOLE [Suspect]
     Route: 049
  2. GENTAMICIN [Concomitant]
     Indication: CORNEAL ULCER
  3. AMIKACIN [Concomitant]
     Indication: CORNEAL ULCER
  4. AMPHOTERICIN B [Concomitant]
     Indication: CORNEAL ULCER
  5. AMLODIPINE [Concomitant]
     Indication: HYPERTENSION

REACTIONS (3)
  - ANAPHYLACTIC SHOCK [None]
  - DRUG INEFFECTIVE [None]
  - FALL [None]
